FAERS Safety Report 20595327 (Version 1)
Quarter: 2022Q1

REPORT INFORMATION
  Report Type: Spontaneous
  Country: JP (occurrence: JP)
  Receive Date: 20220315
  Receipt Date: 20220315
  Transmission Date: 20220423
  Serious: Yes (Other)
  Sender: FDA-Public Use
  Company Number: JP-NOVARTISPH-NVSJ2022JP004314

PATIENT
  Sex: Female

DRUGS (4)
  1. METFORMIN HYDROCHLORIDE\VILDAGLIPTIN [Suspect]
     Active Substance: METFORMIN HYDROCHLORIDE\VILDAGLIPTIN
     Indication: Type 2 diabetes mellitus
     Dosage: 1DF: METFORMIN HYDROCHLORIDE 250MG/VILDAGLIPTIN 50MG, QD
     Route: 048
  2. METFORMIN HYDROCHLORIDE\VILDAGLIPTIN [Suspect]
     Active Substance: METFORMIN HYDROCHLORIDE\VILDAGLIPTIN
     Dosage: 1DF: METFORMIN HYDROCHLORIDE 250MG/VILDAGLIPTIN 50MG, UNK
     Route: 048
  3. TACROLIMUS [Concomitant]
     Active Substance: TACROLIMUS
     Indication: Product used for unknown indication
     Dosage: UNK
     Route: 065
  4. TACROLIMUS [Concomitant]
     Active Substance: TACROLIMUS
     Dosage: DOSE REDUCED
     Route: 065

REACTIONS (6)
  - Renal impairment [Unknown]
  - Polyuria [Unknown]
  - Pollakiuria [Unknown]
  - Blood pressure decreased [Unknown]
  - Glycosylated haemoglobin increased [Unknown]
  - Diarrhoea [Recovering/Resolving]
